FAERS Safety Report 13680112 (Version 1)
Quarter: 2017Q2

REPORT INFORMATION
  Report Type: Spontaneous
  Country: US (occurrence: US)
  Receive Date: 20170622
  Receipt Date: 20170622
  Transmission Date: 20170830
  Serious: No
  Sender: FDA-Public Use
  Company Number: PHEH2017US018224

PATIENT
  Sex: Male

DRUGS (5)
  1. COREG [Suspect]
     Active Substance: CARVEDILOL
     Dosage: 3.2 OT, UNK
     Route: 048
  2. ENTRESTO [Suspect]
     Active Substance: SACUBITRIL\VALSARTAN
     Indication: PRODUCT USED FOR UNKNOWN INDICATION
     Dosage: 100 MG, BID
     Route: 048
  3. WATER PILLS [Suspect]
     Active Substance: UNSPECIFIED INGREDIENT
     Indication: PRODUCT USED FOR UNKNOWN INDICATION
     Route: 048
  4. COREG [Suspect]
     Active Substance: CARVEDILOL
     Indication: PRODUCT USED FOR UNKNOWN INDICATION
     Dosage: 3.2 OT, UNK
     Route: 048
  5. COREG [Suspect]
     Active Substance: CARVEDILOL
     Dosage: 6.4 OT, UNK
     Route: 048

REACTIONS (2)
  - Hypotension [Unknown]
  - Gastric disorder [Unknown]
